FAERS Safety Report 10280023 (Version 1)
Quarter: 2014Q3

REPORT INFORMATION
  Report Type: Spontaneous
  Country: CA (occurrence: None)
  Receive Date: 20140701
  Receipt Date: 20140701
  Transmission Date: 20150326
  Serious: Yes (Other)
  Sender: FDA-Public Use
  Company Number: None

PATIENT
  Age: 9 Year
  Sex: Male
  Weight: 32.57 kg

DRUGS (2)
  1. INTUNIV [Suspect]
     Active Substance: GUANFACINE HYDROCHLORIDE
     Indication: ATTENTION DEFICIT/HYPERACTIVITY DISORDER
     Dosage: 1MG (1 PILL) ONCE DAILY?ONCE DAILY?TAKEN BY MOUTH
     Route: 048
     Dates: start: 20140625, end: 20140627
  2. INTUNIV [Suspect]
     Active Substance: GUANFACINE HYDROCHLORIDE
     Indication: OPPOSITIONAL DEFIANT DISORDER
     Dosage: 1MG (1 PILL) ONCE DAILY?ONCE DAILY?TAKEN BY MOUTH
     Route: 048
     Dates: start: 20140625, end: 20140627

REACTIONS (6)
  - Heart rate irregular [None]
  - Bradycardia [None]
  - Somnolence [None]
  - Hypotension [None]
  - Electrocardiogram T wave inversion [None]
  - Electrocardiogram T wave abnormal [None]

NARRATIVE: CASE EVENT DATE: 20140627
